FAERS Safety Report 5135062-X (Version None)
Quarter: 2006Q4

REPORT INFORMATION
  Report Type: 
  Country: None (occurrence: None)
  Receive Date: 20060831
  Receipt Date: 20060831
  Transmission Date: 20070319
  Serious: Yes (Life-Threatening)
  Sender: FDA-Public Use
  Company Number: 252487

PATIENT
  Sex: Male

DRUGS (4)
  1. NOVOLIN L [Suspect]
     Indication: DIABETES MELLITUS
     Dosage: UNKNOWN, UNK
  2. HUMULIN L      /00030503/(INSULIN ZINC SUSPENSION) [Concomitant]
  3. HUMULIN R [Concomitant]
  4. LANTUS [Concomitant]

REACTIONS (1)
  - ANAPHYLACTIC SHOCK [None]
